FAERS Safety Report 8224047-2 (Version None)
Quarter: 2012Q1

REPORT INFORMATION
  Report Type: 
  Country: None (occurrence: None)
  Receive Date: 20120307
  Receipt Date: 20110622
  Transmission Date: 20120608
  Serious: No
  Sender: FDA-Public Use
  Company Number: PHHY2011US43034

PATIENT
  Age: 5 Year
  Sex: Female
  Weight: 39 kg

DRUGS (4)
  1. AFINITOR [Suspect]
     Indication: ASTROCYTOMA
     Dosage: 2.5 MG DAILY, ORAL
     Route: 048
     Dates: start: 20110222
  2. MAGIC MOUTHWASH (DIPHENHYDRAMINE HYDROCHLORIDE, HYDROCORTISONE, NYSTAT [Concomitant]
  3. TRIEPTAL ^CIBA-GEIGY^ (OXCARBAZEPINE) [Concomitant]
  4. DIASTAT ^ATHENA^ (DIAZEPAM) [Concomitant]

REACTIONS (1)
  - DRUG LEVEL INCREASED [None]
